FAERS Safety Report 15582772 (Version 3)
Quarter: 2018Q4

REPORT INFORMATION
  Report Type: Spontaneous
  Country: BR (occurrence: BR)
  Receive Date: 20181105
  Receipt Date: 20181126
  Transmission Date: 20190205
  Serious: Yes (Other)
  Sender: FDA-Public Use
  Company Number: BR-009507513-1811BRA000610

PATIENT
  Sex: Female

DRUGS (5)
  1. MACRODANTIN [Suspect]
     Active Substance: NITROFURANTOIN
     Dosage: 1 TABLET DAILY
     Route: 048
     Dates: start: 201811
  2. MACRODANTIN [Suspect]
     Active Substance: NITROFURANTOIN
     Dosage: 2 TABLETS DAILY FOR 2 MONTHS
     Route: 048
     Dates: start: 201808, end: 2018
  3. JANUVIA [Suspect]
     Active Substance: SITAGLIPTIN PHOSPHATE
     Dosage: 2 TABLETS DAILY OF JANUVIA (SITAGLIPTIN PHOSPHATE) 50 MG
     Route: 048
     Dates: start: 2017
  4. JANUVIA [Suspect]
     Active Substance: SITAGLIPTIN PHOSPHATE
     Indication: TYPE 2 DIABETES MELLITUS
     Dosage: 1 TABLET DAILY OF JANUVIA (SITAGLIPTIN PHOSPHATE) 50 MG
     Route: 048
     Dates: start: 2015
  5. JANUVIA [Suspect]
     Active Substance: SITAGLIPTIN PHOSPHATE
     Dosage: 1 100 MG TABLET DAILY AFTER THE BREAKFAST
     Route: 048
     Dates: start: 201709

REACTIONS (3)
  - Diarrhoea [Recovered/Resolved]
  - Constipation [Recovered/Resolved]
  - Diabetes mellitus inadequate control [Recovered/Resolved]

NARRATIVE: CASE EVENT DATE: 201808
